FAERS Safety Report 6421775-6 (Version None)
Quarter: 2009Q4

REPORT INFORMATION
  Report Type: 
  Country: None (occurrence: None)
  Receive Date: 20091030
  Receipt Date: 20091027
  Transmission Date: 20100525
  Serious: Yes (Hospitalization)
  Sender: FDA-Public Use
  Company Number: A0802899A

PATIENT
  Age: 60 Year
  Sex: Female

DRUGS (8)
  1. AVANDIA [Suspect]
     Dosage: 4MG TWICE PER DAY
     Route: 048
     Dates: start: 20040518, end: 20041012
  2. PRINIVIL [Concomitant]
  3. GLUCOTROL [Concomitant]
  4. LOVENOX [Concomitant]
  5. TOPROL-XL [Concomitant]
  6. ADVAIR DISKUS 100/50 [Concomitant]
  7. FLEXERIL [Concomitant]
  8. ZOCOR [Concomitant]

REACTIONS (2)
  - CARDIAC FAILURE CONGESTIVE [None]
  - MYOCARDIAL INFARCTION [None]
